FAERS Safety Report 10039795 (Version 2)
Quarter: 2014Q1

REPORT INFORMATION
  Report Type: Report from Study
  Country: HU (occurrence: HU)
  Receive Date: 20140326
  Receipt Date: 20140326
  Transmission Date: 20141002
  Serious: Yes (Hospitalization)
  Sender: FDA-Public Use
  Company Number: HU-JNJFOC-20140105064

PATIENT
  Age: 54 Year
  Sex: Female

DRUGS (1)
  1. STELARA [Suspect]
     Indication: PSORIASIS
     Route: 058
     Dates: start: 20110211

REACTIONS (5)
  - Benign breast neoplasm [Unknown]
  - Dizziness [Unknown]
  - Upper respiratory tract inflammation [Unknown]
  - Cough [Unknown]
  - Rhinorrhoea [Unknown]
